FAERS Safety Report 20643886 (Version 2)
Quarter: 2022Q2

REPORT INFORMATION
  Report Type: Other
  Country: CA (occurrence: None)
  Receive Date: 20220328
  Receipt Date: 20220406
  Transmission Date: 20220721
  Serious: Yes (Other)
  Sender: FDA-Public Use
  Company Number: CA-ROCHE-2332929

PATIENT
  Age: 37 Year
  Sex: Female

DRUGS (5)
  1. OCREVUS [Suspect]
     Active Substance: OCRELIZUMAB
     Indication: Primary progressive multiple sclerosis
     Dosage: 300 MG AT DAY 0 AND 14, THEN 600 MG EVERY 6 MONTH ;ONGOING: YES
     Route: 042
     Dates: start: 20190530
  2. ACCUTANE [Suspect]
     Active Substance: ISOTRETINOIN
     Indication: Product used for unknown indication
     Route: 065
  3. GABAPENTIN [Concomitant]
     Active Substance: GABAPENTIN
     Dosage: 300 3 TABS ;ONGOING: YES
  4. ACCUTANE [Concomitant]
     Active Substance: ISOTRETINOIN
  5. EFFEXOR [Concomitant]
     Active Substance: VENLAFAXINE HYDROCHLORIDE

REACTIONS (11)
  - Feeling abnormal [Recovering/Resolving]
  - Vaginal cyst [Not Recovered/Not Resolved]
  - Speech disorder [Recovering/Resolving]
  - Confusional state [Unknown]
  - Rash [Not Recovered/Not Resolved]
  - Chest pain [Recovered/Resolved]
  - Nasal dryness [Unknown]
  - Acne [Unknown]
  - Vulval abscess [Unknown]
  - Furuncle [Unknown]
  - Emotional distress [Unknown]

NARRATIVE: CASE EVENT DATE: 20190530
